FAERS Safety Report 5944538-4 (Version None)
Quarter: 2008Q4

REPORT INFORMATION
  Report Type: 
  Country: None (occurrence: None)
  Receive Date: 20081105
  Receipt Date: 20081021
  Transmission Date: 20090506
  Serious: Yes (Other)
  Sender: FDA-Public Use
  Company Number: 2008S1018958

PATIENT
  Sex: Male

DRUGS (1)
  1. ATENOLOL [Suspect]
     Indication: HYPERTENSION
     Dosage: 50 MG DAILY ORAL
     Route: 048

REACTIONS (3)
  - BLISTER [None]
  - RASH GENERALISED [None]
  - WOUND SECRETION [None]
